FAERS Safety Report 5220240-1 (Version None)
Quarter: 2007Q1

REPORT INFORMATION
  Report Type: 
  Country: None (occurrence: None)
  Receive Date: 20061208
  Receipt Date: 20060927
  Transmission Date: 20070707
  Serious: Yes (Other)
  Sender: FDA-Public Use
  Company Number: 2006116503

PATIENT
  Sex: Male
  Weight: 103.4201 kg

DRUGS (9)
  1. VIAGRA [Suspect]
     Indication: ERECTILE DYSFUNCTION
     Dosage: 50 MG
  2. WELLBUTRIN [Concomitant]
  3. DOXAZOSIN (DOXAZOSIN) [Concomitant]
  4. BENAZEPRIL (BENAZEPRIL) [Concomitant]
  5. PIROXICAM [Concomitant]
  6. COZAAR [Concomitant]
  7. ASPIRIN [Concomitant]
  8. NITRITIONAL SUPPLEMENT (GENERAL NUTRIENTS) [Concomitant]
  9. MULTI-VITAMINS [Concomitant]

REACTIONS (4)
  - DRUG EFFECT DECREASED [None]
  - ERECTILE DYSFUNCTION [None]
  - ERECTION INCREASED [None]
  - FLUSHING [None]
